FAERS Safety Report 20408726 (Version 1)
Quarter: 2022Q1

REPORT INFORMATION
  Report Type: Spontaneous
  Country: US (occurrence: US)
  Receive Date: 20220201
  Receipt Date: 20220201
  Transmission Date: 20220423
  Serious: Yes (Other)
  Sender: FDA-Public Use
  Company Number: US-AMGEN-USASP2022014729

PATIENT
  Age: 73 Year
  Sex: Female

DRUGS (1)
  1. INFLIXIMAB [Suspect]
     Active Substance: INFLIXIMAB
     Indication: Pemphigoid
     Dosage: 5 MILLIGRAM/KILOGRAM, QD
     Route: 065

REACTIONS (2)
  - Neoplasm progression [Unknown]
  - Off label use [Unknown]
